FAERS Safety Report 24463185 (Version 1)
Quarter: 2024Q4

REPORT INFORMATION
  Report Type: Report from Study
  Country: US (occurrence: US)
  Receive Date: 20241018
  Receipt Date: 20241018
  Transmission Date: 20250114
  Serious: No
  Sender: ROCHE
  Company Number: US-ROCHE-2838055

PATIENT
  Age: 13 Year
  Sex: Male
  Weight: 75.0 kg

DRUGS (8)
  1. XOLAIR [Suspect]
     Active Substance: OMALIZUMAB
     Indication: Asthma
     Dosage: 150 MG AND 75 MG PREFILLED SYRINGE?ON 08/MAY/2021, HE RECEIVED LAST TREATMENT WITH OMALIZUMAB.
     Route: 058
  2. XOLAIR [Suspect]
     Active Substance: OMALIZUMAB
     Indication: Asthma
  3. ALBUTEROL SULFATE [Concomitant]
     Active Substance: ALBUTEROL SULFATE
     Dosage: INHALE 2 TO 4 PUFFS EVERY 4 TO 6 HRS AS NEEDED
  4. CETIRIZINE HCL [Concomitant]
     Active Substance: CETIRIZINE HYDROCHLORIDE
     Dosage: 1 TEASPOON
     Route: 048
  5. EPIPEN [Concomitant]
     Active Substance: EPINEPHRINE
  6. LEVOCETIRIZINE HYDROCHLORIDE [Concomitant]
     Active Substance: LEVOCETIRIZINE HYDROCHLORIDE
     Route: 048
  7. MONTELUCASTE SODICO [Concomitant]
  8. SYMBICORT [Concomitant]
     Active Substance: BUDESONIDE\FORMOTEROL FUMARATE DIHYDRATE
     Dosage: INHALE 2 PUFFS

REACTIONS (2)
  - Off label use [Unknown]
  - No adverse event [Unknown]
